FAERS Safety Report 8384810-4 (Version None)
Quarter: 2012Q2

REPORT INFORMATION
  Report Type: 
  Country: None (occurrence: None)
  Receive Date: 20120524
  Receipt Date: 20120516
  Transmission Date: 20120825
  Serious: Yes (Hospitalization, Other)
  Sender: FDA-Public Use
  Company Number: US-VERTEX PHARMACEUTICALS INC.-AE-2012-003701

PATIENT
  Sex: Male
  Weight: 91.708 kg

DRUGS (4)
  1. PEGASYS [Concomitant]
     Indication: HEPATITIS C
     Route: 058
     Dates: start: 20120312
  2. INCIVEK [Suspect]
     Indication: HEPATITIS C
     Route: 048
     Dates: start: 20120312
  3. RIBAVIRIN [Concomitant]
     Indication: HEPATITIS C
     Route: 048
     Dates: start: 20120312
  4. FISH OIL [Concomitant]
     Route: 048

REACTIONS (8)
  - INFLUENZA LIKE ILLNESS [None]
  - RASH MACULAR [None]
  - DYSPNOEA [None]
  - PRURITUS [None]
  - FATIGUE [None]
  - HEADACHE [None]
  - HAEMOGLOBIN DECREASED [None]
  - PALPITATIONS [None]
